FAERS Safety Report 15862171 (Version 4)
Quarter: 2019Q2

REPORT INFORMATION
  Report Type: Spontaneous
  Country: SE (occurrence: SE)
  Receive Date: 20190124
  Receipt Date: 20190429
  Transmission Date: 20190711
  Serious: Yes (Hospitalization, Other)
  Sender: FDA-Public Use
  Company Number: SE-SAKK-2019SA017310AA

PATIENT
  Age: 70 Year
  Sex: Male

DRUGS (9)
  1. BEHEPAN [CYANOCOBALAMIN] [Concomitant]
  2. TROMBYL [Concomitant]
     Active Substance: ASPIRIN
  3. EZETIMIBE. [Concomitant]
     Active Substance: EZETIMIBE
  4. METFORMIN [Concomitant]
     Active Substance: METFORMIN HYDROCHLORIDE
  5. DUPIXENT [Suspect]
     Active Substance: DUPILUMAB
     Indication: DERMATITIS ATOPIC
     Dosage: 300 MG, QOW
     Route: 058
     Dates: start: 20181219, end: 20190116
  6. DUPIXENT [Suspect]
     Active Substance: DUPILUMAB
     Dosage: 300 MG, QOW
     Route: 058
  7. SIMVASTATIN. [Concomitant]
     Active Substance: SIMVASTATIN
  8. OMEPRAZOLE [OMEPRAZOLE SODIUM] [Concomitant]
     Active Substance: OMEPRAZOLE SODIUM
  9. DUPIXENT [Suspect]
     Active Substance: DUPILUMAB
     Dosage: 600 MG, 1X
     Route: 058
     Dates: start: 20190313, end: 20190313

REACTIONS (2)
  - Ophthalmic herpes simplex [Recovered/Resolved]
  - Corneal perforation [Recovered/Resolved]

NARRATIVE: CASE EVENT DATE: 201901
